FAERS Safety Report 25793883 (Version 1)
Quarter: 2025Q3

REPORT INFORMATION
  Report Type: Spontaneous
  Country: US (occurrence: US)
  Receive Date: 20250912
  Receipt Date: 20250912
  Transmission Date: 20251020
  Serious: Yes (Hospitalization, Other)
  Sender: ELI LILLY AND COMPANY
  Company Number: US-ELI_LILLY_AND_COMPANY-US202509003861

PATIENT
  Age: 63 Year
  Sex: Male

DRUGS (1)
  1. ZEPBOUND [Suspect]
     Active Substance: TIRZEPATIDE
     Indication: Product used for unknown indication
     Route: 065

REACTIONS (8)
  - Dehydration [Recovering/Resolving]
  - Vomiting [Unknown]
  - Feeding disorder [Unknown]
  - Malaise [Unknown]
  - Dizziness [Unknown]
  - Dyspepsia [Unknown]
  - Gastrooesophageal reflux disease [Unknown]
  - Fatigue [Unknown]

NARRATIVE: CASE EVENT DATE: 20250901
